FAERS Safety Report 6316466-6 (Version None)
Quarter: 2009Q3

REPORT INFORMATION
  Report Type: 
  Country: None (occurrence: None)
  Receive Date: 20090820
  Receipt Date: 20090819
  Transmission Date: 20100115
  Serious: No
  Sender: FDA-Public Use
  Company Number: US-B.I. PHARMACEUTICALS,INC./RIDGEFIELD-2009-BP-09768BP

PATIENT

DRUGS (8)
  1. VIRAMUNE [Suspect]
     Indication: HIV INFECTION
  2. ATRIPLA (EFAVIRENZ+TENOFOVIR+EMTRICITABINE) [Concomitant]
  3. COMBIVIR (ZIDOVUDINE+LAMIVUDINE, AZT+3TC) [Concomitant]
  4. VIDEX (DIDANOSINE, DDI) [Concomitant]
  5. CRIXIVAN (INDINAVIR, IDV) [Concomitant]
  6. INVIRASE (SAQUINAVIR, SQV) [Concomitant]
  7. NORVIR (RITONAVIR, RTV) [Concomitant]
  8. VIRACEPT (NELFINAVIR, NFV) [Concomitant]

REACTIONS (1)
  - DRUG RESISTANCE [None]
